FAERS Safety Report 21411464 (Version 9)
Quarter: 2023Q1

REPORT INFORMATION
  Report Type: Spontaneous
  Country: US (occurrence: US)
  Receive Date: 20221005
  Receipt Date: 20230216
  Transmission Date: 20230418
  Serious: Yes (Other)
  Sender: FDA-Public Use
  Company Number: US-PFIZER INC-PV202200075831

PATIENT
  Age: 51 Year
  Sex: Female
  Weight: 90.72 kg

DRUGS (3)
  1. XELJANZ XR [Suspect]
     Active Substance: TOFACITINIB CITRATE
     Indication: Rheumatoid arthritis
     Dosage: 11 MG, DAILY
     Dates: end: 20220921
  2. PREDNISONE [Concomitant]
     Active Substance: PREDNISONE
     Indication: Rheumatoid arthritis
     Dosage: 10 MG, DAILY (CAN TAKE 15-20 WITH REALLY BAD FLARE UP)
  3. TOPAMAX [Concomitant]
     Active Substance: TOPIRAMATE
     Indication: Migraine
     Dosage: 100 MG, 2X/DAY

REACTIONS (21)
  - Suicidal ideation [Unknown]
  - Sjogren^s syndrome [Unknown]
  - Pain [Unknown]
  - Arthralgia [Unknown]
  - Swelling face [Recovering/Resolving]
  - Lacrimation increased [Unknown]
  - Musculoskeletal chest pain [Unknown]
  - Weight increased [Unknown]
  - Therapeutic response unexpected [Unknown]
  - Psychiatric symptom [Unknown]
  - Bone deformity [Unknown]
  - Fatigue [Unknown]
  - Insomnia [Unknown]
  - Arthropathy [Unknown]
  - Peripheral swelling [Unknown]
  - Periorbital swelling [Unknown]
  - Condition aggravated [Unknown]
  - Skin fissures [Unknown]
  - Loss of personal independence in daily activities [Unknown]
  - Oropharyngeal pain [Unknown]
  - Malaise [Unknown]
